FAERS Safety Report 13225349 (Version 1)
Quarter: 2017Q1

REPORT INFORMATION
  Report Type: Spontaneous
  Country: US (occurrence: US)
  Receive Date: 20170213
  Receipt Date: 20170213
  Transmission Date: 20170428
  Serious: Yes (Other)
  Sender: FDA-Public Use
  Company Number: US-ASTRAZENECA-2017SE13774

PATIENT
  Age: 62 Year
  Sex: Female

DRUGS (4)
  1. STATIN [Concomitant]
     Active Substance: UNSPECIFIED INGREDIENT
  2. ATENOLOL. [Suspect]
     Active Substance: ATENOLOL
     Route: 048
  3. BRILINTA [Suspect]
     Active Substance: TICAGRELOR
     Indication: STENT PLACEMENT
     Route: 048
     Dates: start: 20161110
  4. ASA [Concomitant]
     Active Substance: ASPIRIN

REACTIONS (3)
  - Coronary artery occlusion [Unknown]
  - Dyspnoea exertional [Unknown]
  - Pain in jaw [Unknown]

NARRATIVE: CASE EVENT DATE: 2011
